FAERS Safety Report 25584827 (Version 1)
Quarter: 2025Q3

REPORT INFORMATION
  Report Type: Spontaneous
  Country: US (occurrence: US)
  Receive Date: 20250721
  Receipt Date: 20250721
  Transmission Date: 20251020
  Serious: Yes (Life-Threatening, Hospitalization)
  Sender: MYLAN
  Company Number: US-MYLANLABS-2025M1058532

PATIENT
  Age: 65 Year
  Sex: Male

DRUGS (12)
  1. DEXAMETHASONE [Suspect]
     Active Substance: DEXAMETHASONE
     Indication: Arthralgia
  2. DEXAMETHASONE [Suspect]
     Active Substance: DEXAMETHASONE
     Route: 065
  3. DEXAMETHASONE [Suspect]
     Active Substance: DEXAMETHASONE
     Route: 065
  4. DEXAMETHASONE [Suspect]
     Active Substance: DEXAMETHASONE
  5. KETOROLAC [Suspect]
     Active Substance: KETOROLAC TROMETHAMINE
     Indication: Arthralgia
  6. KETOROLAC [Suspect]
     Active Substance: KETOROLAC TROMETHAMINE
     Route: 065
  7. KETOROLAC [Suspect]
     Active Substance: KETOROLAC TROMETHAMINE
     Route: 065
  8. KETOROLAC [Suspect]
     Active Substance: KETOROLAC TROMETHAMINE
  9. MELOXICAM [Suspect]
     Active Substance: MELOXICAM
     Indication: Arthralgia
  10. MELOXICAM [Suspect]
     Active Substance: MELOXICAM
     Route: 065
  11. MELOXICAM [Suspect]
     Active Substance: MELOXICAM
     Route: 065
  12. MELOXICAM [Suspect]
     Active Substance: MELOXICAM

REACTIONS (6)
  - Steroid withdrawal syndrome [Unknown]
  - Adrenocortical insufficiency acute [Unknown]
  - Adrenal insufficiency [Unknown]
  - Hypercalcaemia [Unknown]
  - Acute kidney injury [Unknown]
  - Counterfeit product administered [Unknown]
